FAERS Safety Report 9612587 (Version 1)
Quarter: 2013Q4

REPORT INFORMATION
  Report Type: Spontaneous
  Country: US (occurrence: US)
  Receive Date: 20131010
  Receipt Date: 20131010
  Transmission Date: 20140711
  Serious: Yes (Other)
  Sender: FDA-Public Use
  Company Number: US-PFIZER INC-2013286676

PATIENT
  Sex: Female

DRUGS (2)
  1. LIPITOR [Suspect]
     Dosage: 10 MG, UNK
     Dates: start: 2003
  2. BIAXIN [Suspect]
     Dosage: UNK

REACTIONS (5)
  - Haemorrhage [Unknown]
  - Heart rate increased [Unknown]
  - Palpitations [Unknown]
  - Musculoskeletal pain [Recovered/Resolved]
  - Pain [Unknown]
